FAERS Safety Report 21391717 (Version 8)
Quarter: 2023Q4

REPORT INFORMATION
  Report Type: Spontaneous
  Country: US (occurrence: US)
  Receive Date: 20220929
  Receipt Date: 20231109
  Transmission Date: 20240110
  Serious: Yes (Other)
  Sender: FDA-Public Use
  Company Number: US-PFIZER INC-PV202200072031

PATIENT
  Age: 65 Year
  Sex: Female
  Weight: 59.864 kg

DRUGS (4)
  1. XELJANZ [Suspect]
     Active Substance: TOFACITINIB CITRATE
     Indication: Rheumatoid arthritis
     Dosage: 5 MG, 2X/DAY
     Route: 048
     Dates: start: 2020
  2. XELJANZ [Suspect]
     Active Substance: TOFACITINIB CITRATE
     Indication: Psoriatic arthropathy
  3. XELJANZ [Suspect]
     Active Substance: TOFACITINIB CITRATE
     Indication: Osteoarthritis
  4. HYDROXYCHLOROQUINE [Suspect]
     Active Substance: HYDROXYCHLOROQUINE
     Dosage: UNK
     Dates: start: 2020

REACTIONS (26)
  - Rheumatoid arthritis [Not Recovered/Not Resolved]
  - Diverticulitis [Unknown]
  - Drug ineffective [Unknown]
  - Therapeutic product effect incomplete [Unknown]
  - Oral herpes [Unknown]
  - Nasal dryness [Unknown]
  - Spinal pain [Unknown]
  - Illness [Unknown]
  - Upper respiratory tract infection [Unknown]
  - Sinusitis [Unknown]
  - Intervertebral disc degeneration [Unknown]
  - Condition aggravated [Not Recovered/Not Resolved]
  - Loose body in joint [Unknown]
  - Fatigue [Unknown]
  - Abdominal pain upper [Unknown]
  - Gastrooesophageal reflux disease [Unknown]
  - Arthralgia [Not Recovered/Not Resolved]
  - Musculoskeletal stiffness [Unknown]
  - Hand deformity [Unknown]
  - Pain in extremity [Unknown]
  - Polyp [Unknown]
  - Back pain [Unknown]
  - Sensitivity to weather change [Unknown]
  - Musculoskeletal discomfort [Unknown]
  - Respiratory disorder [Unknown]
  - Product dose omission issue [Unknown]

NARRATIVE: CASE EVENT DATE: 20200101
